FAERS Safety Report 8419487-2 (Version None)
Quarter: 2012Q2

REPORT INFORMATION
  Report Type: 
  Country: None (occurrence: None)
  Receive Date: 20120607
  Receipt Date: 20120603
  Transmission Date: 20120825
  Serious: Yes (Life-Threatening, Hospitalization)
  Sender: FDA-Public Use
  Company Number: US-MILLENNIUM PHARMACEUTICALS, INC.-2012-03990

PATIENT
  Age: 6 Year
  Sex: Female
  Weight: 21 kg

DRUGS (5)
  1. VELCADE [Suspect]
     Indication: ACUTE MYELOID LEUKAEMIA
     Dosage: 1.3 MG/M2, CYCLIC
     Route: 040
     Dates: start: 20120529, end: 20120529
  2. DAUNORUBICIN HYDROCHLORIDE [Suspect]
     Indication: ACUTE MYELOID LEUKAEMIA
     Dosage: 50 MG/M2, CYCLIC
     Route: 042
     Dates: start: 20120529, end: 20120530
  3. CYTARABINE [Suspect]
     Dosage: 100 MG/M2, CYCLIC
     Route: 042
     Dates: start: 20120529, end: 20120601
  4. CYTARABINE [Suspect]
     Indication: ACUTE MYELOID LEUKAEMIA
     Dosage: 70 MG, CYCLIC
     Route: 037
     Dates: start: 20120529, end: 20120601
  5. ETOPOSIDE [Suspect]
     Indication: ACUTE MYELOID LEUKAEMIA
     Dosage: 100 MG/M2, CYCLIC
     Route: 042
     Dates: start: 20120529, end: 20120531

REACTIONS (1)
  - ACUTE RESPIRATORY DISTRESS SYNDROME [None]
